FAERS Safety Report 8956076 (Version 2)
Quarter: 2013Q1

REPORT INFORMATION
  Report Type: Spontaneous
  Country: US (occurrence: US)
  Receive Date: 20121210
  Receipt Date: 20130117
  Transmission Date: 20140127
  Serious: No
  Sender: FDA-Public Use
  Company Number: US-PFIZER INC-2012309754

PATIENT
  Age: 54 Year
  Sex: Male
  Weight: 68 kg

DRUGS (5)
  1. LYRICA [Suspect]
     Indication: NEURALGIA
     Dosage: 100 MG, 3X/DAY
  2. LYRICA [Suspect]
     Dosage: 200 MG, 3X/DAY
  3. LYRICA [Suspect]
     Dosage: 200 MG, 3X/DAY
  4. SPIRIVA [Concomitant]
     Indication: CHRONIC OBSTRUCTIVE PULMONARY DISEASE
     Dosage: ONE PUFF AT UNKNOWN DOSE DAILY
  5. ADVAIR DISKUS [Concomitant]
     Indication: CHRONIC OBSTRUCTIVE PULMONARY DISEASE
     Dosage: ONE PUFF AT UNKNOWN DOSE DAILY

REACTIONS (3)
  - Skin disorder [Not Recovered/Not Resolved]
  - Contusion [Not Recovered/Not Resolved]
  - Balance disorder [Not Recovered/Not Resolved]
